FAERS Safety Report 5073478-0 (Version None)
Quarter: 2006Q3

REPORT INFORMATION
  Report Type: 
  Country: None (occurrence: None)
  Receive Date: 20060803
  Receipt Date: 20060724
  Transmission Date: 20061208
  Serious: Yes (Hospitalization, Other)
  Sender: FDA-Public Use
  Company Number: 2006082948

PATIENT
  Age: 20 Year
  Sex: Female
  Weight: 85 kg

DRUGS (2)
  1. LYRICA [Suspect]
     Indication: NEURALGIA
     Dosage: 300 MG (100 MG, 3 IN 1 D), ORAL
     Route: 048
     Dates: start: 20060322
  2. CITALOPRAM [Concomitant]

REACTIONS (12)
  - ASTHENIA [None]
  - CHEST DISCOMFORT [None]
  - CONVULSION [None]
  - DISORIENTATION [None]
  - HEADACHE [None]
  - HYPOAESTHESIA [None]
  - MALAISE [None]
  - PARAESTHESIA [None]
  - PRURITUS [None]
  - RASH [None]
  - SOMNOLENCE [None]
  - TREMOR [None]
